FAERS Safety Report 9011820 (Version 1)
Quarter: 2013Q1

REPORT INFORMATION
  Report Type: Spontaneous
  Country: US (occurrence: US)
  Receive Date: 20130113
  Receipt Date: 20130113
  Transmission Date: 20140127
  Serious: No
  Sender: FDA-Public Use
  Company Number: US-009507513-1301USA001297

PATIENT
  Age: 57 Year
  Sex: Male
  Weight: 83.9 kg

DRUGS (10)
  1. VICTRELIS [Suspect]
     Dosage: 800 MG, TID
     Route: 048
  2. PEGASYS [Suspect]
     Route: 058
  3. RIBAPAK [Suspect]
     Dosage: 800/DAY
     Route: 048
  4. CHOLECALCIFEROL [Concomitant]
     Route: 048
  5. LISINOPRIL [Concomitant]
     Route: 048
  6. LEXAPRO [Concomitant]
     Route: 048
  7. XANAX [Concomitant]
     Route: 048
  8. LOVAZA [Concomitant]
     Route: 048
  9. PROTONIX [Concomitant]
     Route: 048
  10. ZINC (UNSPECIFIED) [Concomitant]
     Route: 048

REACTIONS (1)
  - Headache [Unknown]
